FAERS Safety Report 15445338 (Version 2)
Quarter: 2018Q4

REPORT INFORMATION
  Report Type: Report from Study
  Country: None (occurrence: US)
  Receive Date: 20180928
  Receipt Date: 20181106
  Transmission Date: 20190204
  Serious: Yes (Other)
  Sender: FDA-Public Use
  Company Number: US-ABBVIE-18K-163-2502510-00

PATIENT
  Age: 36 Year
  Sex: Female
  Weight: 154.36 kg

DRUGS (1)
  1. HUMIRA [Suspect]
     Active Substance: ADALIMUMAB
     Indication: COLITIS ULCERATIVE
     Route: 058

REACTIONS (3)
  - Gastric haemorrhage [Recovering/Resolving]
  - Large intestinal haemorrhage [Recovering/Resolving]
  - Diarrhoea [Not Recovered/Not Resolved]
